FAERS Safety Report 6185524-1 (Version None)
Quarter: 2009Q2

REPORT INFORMATION
  Report Type: 
  Country: None (occurrence: None)
  Receive Date: 20090511
  Receipt Date: 20090505
  Transmission Date: 20091009
  Serious: Yes (Other)
  Sender: FDA-Public Use
  Company Number: AU-JNJFOC-20090501217

PATIENT
  Age: 81 Year
  Sex: Male

DRUGS (3)
  1. DURAGESIC-100 [Suspect]
     Dosage: 12.5UG/HR HALF OF 12.5UG/HR
     Route: 062
  2. DURAGESIC-100 [Suspect]
     Indication: PAIN
     Route: 062
  3. ENDONE [Concomitant]
     Indication: BREAKTHROUGH PAIN
     Route: 065

REACTIONS (2)
  - CONFUSIONAL STATE [None]
  - WRONG TECHNIQUE IN DRUG USAGE PROCESS [None]
